FAERS Safety Report 7802969-1 (Version None)
Quarter: 2011Q4

REPORT INFORMATION
  Report Type: 
  Country: None (occurrence: None)
  Receive Date: 20111007
  Receipt Date: 20110902
  Transmission Date: 20120403
  Serious: No
  Sender: FDA-Public Use
  Company Number: CA-BAYER-2011-080776

PATIENT
  Sex: Female

DRUGS (1)
  1. MIRENA [Suspect]
     Indication: CONTRACEPTION
     Dosage: UNK
     Route: 015
     Dates: start: 20110224, end: 20110823

REACTIONS (3)
  - DEVICE EXPULSION [None]
  - DYSPAREUNIA [None]
  - COITAL BLEEDING [None]
